FAERS Safety Report 25074205 (Version 2)
Quarter: 2025Q2

REPORT INFORMATION
  Report Type: Spontaneous
  Country: RU (occurrence: RU)
  Receive Date: 20250313
  Receipt Date: 20250411
  Transmission Date: 20250716
  Serious: Yes (Hospitalization, Other)
  Sender: RANBAXY
  Company Number: RU-SUN PHARMACEUTICAL INDUSTRIES LTD-2025R1-498032

PATIENT
  Age: 34 Year
  Sex: Female

DRUGS (5)
  1. METHYLPREDNISOLONE [Suspect]
     Active Substance: METHYLPREDNISOLONE
     Indication: Diabetic retinopathy
     Dosage: 4 MILLIGRAM, DAILY
     Route: 065
  2. INSULIN NOS [Suspect]
     Active Substance: INSULIN NOS
     Indication: Gestational diabetes
     Route: 065
  3. TACROLIMUS [Suspect]
     Active Substance: TACROLIMUS
     Indication: Immunosuppression
     Dosage: 7 MILLIGRAM, DAILY
     Route: 065
  4. METHYLDOPA [Suspect]
     Active Substance: METHYLDOPA
     Indication: Blood pressure increased
     Route: 065
  5. AZATHIOPRINE [Suspect]
     Active Substance: AZATHIOPRINE
     Indication: Immunosuppression
     Dosage: 50 MILLIGRAM, DAILY
     Route: 065

REACTIONS (5)
  - Blood pressure increased [Recovering/Resolving]
  - Arteriosclerosis [Unknown]
  - Arterial stenosis [Unknown]
  - Exposure during pregnancy [Unknown]
  - Live birth [Unknown]
